FAERS Safety Report 16418327 (Version 3)
Quarter: 2019Q3

REPORT INFORMATION
  Report Type: Report from Study
  Country: None (occurrence: US)
  Receive Date: 20190612
  Receipt Date: 20190711
  Transmission Date: 20191004
  Serious: Yes (Other)
  Sender: FDA-Public Use
  Company Number: US-ABBVIE-19S-163-2728389-00

PATIENT
  Sex: Female

DRUGS (2)
  1. LUPRON [Suspect]
     Active Substance: LEUPROLIDE ACETATE
     Indication: PRODUCT USED FOR UNKNOWN INDICATION
     Route: 050
  2. ORILISSA [Suspect]
     Active Substance: ELAGOLIX SODIUM
     Indication: PRODUCT USED FOR UNKNOWN INDICATION
     Route: 048
     Dates: end: 20190708

REACTIONS (11)
  - Pancreatic failure [Recovering/Resolving]
  - Wrong technique in product usage process [Unknown]
  - Weight decreased [Unknown]
  - Hot flush [Unknown]
  - Mental disorder [Not Recovered/Not Resolved]
  - Eating disorder [Unknown]
  - Malaise [Not Recovered/Not Resolved]
  - Dyspepsia [Unknown]
  - Mood swings [Not Recovered/Not Resolved]
  - Diarrhoea [Recovering/Resolving]
  - Drug ineffective [Not Recovered/Not Resolved]
